FAERS Safety Report 5664820-8 (Version None)
Quarter: 2008Q1

REPORT INFORMATION
  Report Type: 
  Country: None (occurrence: None)
  Receive Date: 20080314
  Receipt Date: 20080304
  Transmission Date: 20080703
  Serious: Yes (Hospitalization)
  Sender: FDA-Public Use
  Company Number: US-PFIZER INC-2008019713

PATIENT
  Sex: Female
  Weight: 50.8 kg

DRUGS (8)
  1. SUTENT [Suspect]
     Indication: GLIOBLASTOMA
     Route: 048
     Dates: start: 20080108, end: 20080225
  2. BACTRIM DS [Concomitant]
  3. CALCIUM WITH VITAMIN D [Concomitant]
     Dates: start: 20070521
  4. COMPAZINE [Concomitant]
     Dates: start: 20080103
  5. LIPITOR [Concomitant]
     Dates: start: 20070521
  6. ALL OTHER THERAPEUTIC PRODUCTS [Concomitant]
     Dosage: FREQ:PR
     Dates: start: 20070814
  7. RITALIN [Concomitant]
     Dates: start: 20080204
  8. LEVOTHYROXINE SODIUM [Concomitant]
     Dates: start: 20080222

REACTIONS (7)
  - BLOOD SODIUM DECREASED [None]
  - CEREBRAL HAEMORRHAGE [None]
  - FALL [None]
  - LOSS OF CONSCIOUSNESS [None]
  - NEOPLASM PROGRESSION [None]
  - PLATELET COUNT DECREASED [None]
  - WHITE BLOOD CELL COUNT DECREASED [None]
